FAERS Safety Report 20199118 (Version 1)
Quarter: 2021Q4

REPORT INFORMATION
  Report Type: Spontaneous
  Country: BR (occurrence: BR)
  Receive Date: 20211217
  Receipt Date: 20211217
  Transmission Date: 20220303
  Serious: Yes (Hospitalization, Disabling, Other)
  Sender: FDA-Public Use
  Company Number: BR-AMERICAN REGENT INC-2021003283

PATIENT
  Sex: Female
  Weight: 71 kg

DRUGS (2)
  1. VENOFER [Suspect]
     Active Substance: IRON SUCROSE
     Indication: Asthenia
     Dosage: 1 VIAL PER WEEK (RECEIVED 2 VIALS); PRESCRIBED AS 3 VIALS PER WEEK
     Route: 042
  2. VENOFER [Suspect]
     Active Substance: IRON SUCROSE
     Indication: Anaemia

REACTIONS (7)
  - Blindness [Unknown]
  - Myocardial infarction [Unknown]
  - Cerebrovascular accident [Unknown]
  - Cardiac failure [Unknown]
  - Hypokinesia [Unknown]
  - Treatment noncompliance [Unknown]
  - Product availability issue [Unknown]
